FAERS Safety Report 6138086-9 (Version None)
Quarter: 2009Q1

REPORT INFORMATION
  Report Type: 
  Country: None (occurrence: None)
  Receive Date: 20090331
  Receipt Date: 20090318
  Transmission Date: 20090719
  Serious: Yes (Hospitalization, Other)
  Sender: FDA-Public Use
  Company Number: US-AVENTIS-200912064US

PATIENT
  Age: 68 Year
  Sex: Female

DRUGS (5)
  1. LOVENOX [Suspect]
     Indication: DEEP VEIN THROMBOSIS
     Dosage: DOSE: UNK
     Route: 051
     Dates: start: 20090101
  2. ALL OTHER THERAPEUTIC PRODUCTS [Concomitant]
     Dosage: DOSE: UNK
  3. DILANTIN                           /00017401/ [Concomitant]
     Dosage: DOSE: UNK
  4. KEPPRA [Concomitant]
     Dosage: DOSE: UNK
  5. TEMODAR [Concomitant]
     Dosage: DOSE: UNK
     Dates: start: 20090301, end: 20090313

REACTIONS (10)
  - CONVULSION [None]
  - DISORIENTATION [None]
  - FALL [None]
  - FEELING OF BODY TEMPERATURE CHANGE [None]
  - HYPOAESTHESIA [None]
  - INJECTION SITE INDURATION [None]
  - INJECTION SITE PAIN [None]
  - MIGRAINE [None]
  - TREMOR [None]
  - WHITE BLOOD CELL COUNT DECREASED [None]
